FAERS Safety Report 7422604-4 (Version None)
Quarter: 2011Q2

REPORT INFORMATION
  Report Type: 
  Country: None (occurrence: None)
  Receive Date: 20110408
  Receipt Date: 20110331
  Transmission Date: 20111010
  Serious: Yes (Other)
  Sender: FDA-Public Use
  Company Number: DSU-2011-02354

PATIENT

DRUGS (1)
  1. OLMETEC (OLMESARTAN MEDOXOMIL) (TABLET) (OLMESARTAN MEDOXOMIL) [Suspect]
     Indication: PRODUCT USED FOR UNKNOWN INDICATION
     Dosage: 20 MG (20 MG, QD), PER ORAL; 40 MG (40 MG, QD), PER ORAL; 20 MG (20 MG, QD), PER ORAL
     Route: 048

REACTIONS (4)
  - PALPITATIONS [None]
  - DIZZINESS [None]
  - MALAISE [None]
  - CEREBROVASCULAR ACCIDENT [None]
